FAERS Safety Report 14246907 (Version 1)
Quarter: 2017Q4

REPORT INFORMATION
  Report Type: Spontaneous
  Country: US (occurrence: None)
  Receive Date: 20171201
  Receipt Date: 20171201
  Transmission Date: 20180321
  Serious: Yes (Other)
  Sender: FDA-Public Use
  Company Number: None

PATIENT
  Age: 62 Year
  Sex: Female
  Weight: 66.68 kg

DRUGS (1)
  1. ATORVASTATIN 20MG [Suspect]
     Active Substance: ATORVASTATIN
     Indication: HYPERLIPIDAEMIA
     Route: 048

REACTIONS (1)
  - Chest pain [None]
